FAERS Safety Report 18261119 (Version 1)
Quarter: 2020Q3

REPORT INFORMATION
  Report Type: Report from Study
  Country: CA (occurrence: CA)
  Receive Date: 20200914
  Receipt Date: 20200914
  Transmission Date: 20201103
  Serious: Yes (Other)
  Sender: FDA-Public Use
  Company Number: CA-BIOGEN-2020BI00862215

PATIENT
  Age: 44 Year
  Sex: Male

DRUGS (1)
  1. TECFIDERA [Suspect]
     Active Substance: DIMETHYL FUMARATE
     Indication: PRODUCT USED FOR UNKNOWN INDICATION
     Dosage: MAINTENANCE DOSE
     Route: 048
     Dates: start: 20200226, end: 20200908

REACTIONS (4)
  - Fatigue [Unknown]
  - Tinnitus [Unknown]
  - Therapeutic response unexpected [Unknown]
  - Depression suicidal [Unknown]

NARRATIVE: CASE EVENT DATE: 2020
